FAERS Safety Report 25891468 (Version 1)
Quarter: 2025Q4

REPORT INFORMATION
  Report Type: Spontaneous
  Country: JP (occurrence: JP)
  Receive Date: 20251007
  Receipt Date: 20251007
  Transmission Date: 20260118
  Serious: Yes (Other)
  Sender: FERRING
  Company Number: JP-FERRINGPH-2025FE05840

PATIENT

DRUGS (1)
  1. DESMOPRESSIN [Suspect]
     Active Substance: DESMOPRESSIN
     Indication: Product used for unknown indication
     Dosage: 1 DOSAGE FORM, 2 TIMES DAILY (ONE PUFF AT A TIME)
     Route: 045

REACTIONS (2)
  - Cerebral infarction [Unknown]
  - Cerebral disorder [Unknown]
